FAERS Safety Report 4308720-4 (Version None)
Quarter: 2004Q1

REPORT INFORMATION
  Report Type: 
  Country: None (occurrence: None)
  Receive Date: 20040227
  Receipt Date: 20040217
  Transmission Date: 20041129
  Serious: Yes (Death, Other)
  Sender: FDA-Public Use
  Company Number: USA-2003-0006578

PATIENT
  Sex: Male

DRUGS (1)
  1. OXYCONTIN [Suspect]
     Indication: CANCER PAIN
     Dosage: ORAL
     Route: 048

REACTIONS (4)
  - DRUG DEPENDENCE [None]
  - MALIGNANT NEOPLASM PROGRESSION [None]
  - PAIN [None]
  - PANCREATIC CARCINOMA [None]
